FAERS Safety Report 10160723 (Version 1)
Quarter: 2014Q2

REPORT INFORMATION
  Report Type: Spontaneous
  Country: TR (occurrence: TR)
  Receive Date: 20140508
  Receipt Date: 20140508
  Transmission Date: 20141212
  Serious: Yes (Hospitalization)
  Sender: FDA-Public Use
  Company Number: TR-WATSON-2014-09429

PATIENT
  Age: 44 Year
  Sex: Female

DRUGS (1)
  1. ACETAZOLAMIDE (WATSON LABORATORIES) [Suspect]
     Indication: BENIGN INTRACRANIAL HYPERTENSION
     Dosage: 250 MG, DAILY
     Route: 065

REACTIONS (3)
  - Jaundice [Recovered/Resolved]
  - Nausea [Unknown]
  - Hepatic enzyme increased [Recovered/Resolved]
